FAERS Safety Report 18960379 (Version 2)
Quarter: 2021Q1

REPORT INFORMATION
  Report Type: Spontaneous
  Country: US (occurrence: US)
  Receive Date: 20210303
  Receipt Date: 20210305
  Transmission Date: 20210420
  Serious: No
  Sender: FDA-Public Use
  Company Number: US-GLAXOSMITHKLINE-US2021054979

PATIENT
  Sex: Male

DRUGS (3)
  1. FLONASE ALLERGY RELIEF [Suspect]
     Active Substance: FLUTICASONE PROPIONATE
     Indication: PRODUCT USED FOR UNKNOWN INDICATION
     Dosage: UNK
     Route: 045
     Dates: start: 202101
  2. FLUTICASONE PROPIONATE+SALMETEROL XINAFOATE [Suspect]
     Active Substance: FLUTICASONE PROPIONATE\SALMETEROL XINAFOATE
     Indication: PRODUCT USED FOR UNKNOWN INDICATION
     Dosage: UNK, 250/50, MCG
     Route: 055
  3. FLOVENT HFA [Suspect]
     Active Substance: FLUTICASONE PROPIONATE
     Indication: PRODUCT USED FOR UNKNOWN INDICATION
     Dosage: 2 PUFF(S), BID, 220
     Route: 055

REACTIONS (10)
  - Cough [Recovered/Resolved]
  - Testicular pain [Not Recovered/Not Resolved]
  - Neck pain [Unknown]
  - Arthralgia [Not Recovered/Not Resolved]
  - Gait disturbance [Unknown]
  - Muscle strain [Recovered/Resolved]
  - Myalgia [Recovered/Resolved]
  - Drug ineffective [Unknown]
  - Chest pain [Not Recovered/Not Resolved]
  - Back pain [Unknown]
